FAERS Safety Report 4696512-6 (Version None)
Quarter: 2005Q2

REPORT INFORMATION
  Report Type: 
  Country: None (occurrence: None)
  Receive Date: 20050608
  Receipt Date: 20050303
  Transmission Date: 20051028
  Serious: Yes (Hospitalization)
  Sender: FDA-Public Use
  Company Number: F03200500031

PATIENT
  Age: 65 Year
  Sex: Male

DRUGS (5)
  1. ELOXATIN [Suspect]
     Indication: COLON CANCER STAGE III
     Dosage: 85 MG/M2 Q2W - INTRAVENOUS NOS
     Route: 042
     Dates: start: 20050207, end: 20050207
  2. LEUCOVORIN CALCIUM [Suspect]
     Indication: COLON CANCER STAGE III
     Dosage: 400 MG/M2 Q2W - INTRAVENOUS NOS
     Route: 042
     Dates: start: 20050207, end: 20050207
  3. FLUOROURACIL [Suspect]
     Indication: COLON CANCER STAGE III
     Dosage: NI - INTRAVENOUS NOS
     Route: 042
     Dates: start: 20050209, end: 20050209
  4. DEXAMETHASONE [Suspect]
     Indication: PROPHYLAXIS OF NAUSEA AND VOMITING
     Dosage: NI - INTRAVENOUS NOS
     Route: 042
  5. ANTIBIOTICS [Concomitant]

REACTIONS (6)
  - CYSTITIS [None]
  - MUSCULAR WEAKNESS [None]
  - MYOSITIS [None]
  - PAIN IN EXTREMITY [None]
  - PYREXIA [None]
  - SEPSIS [None]
